FAERS Safety Report 9230688 (Version 2)
Quarter: 2013Q2

REPORT INFORMATION
  Report Type: Spontaneous
  Country: US (occurrence: None)
  Receive Date: 20121031
  Receipt Date: 20130107
  Transmission Date: 20140414
  Serious: No
  Sender: FDA-Public Use
  Company Number: PHEH2012US016713

PATIENT
  Age: 39 Year
  Sex: Male

DRUGS (3)
  1. GILENYA (FTY) CAPSULE, 0.5MG [Suspect]
     Route: 048
     Dates: start: 20120810
  2. BYSTOLIC [Suspect]
  3. VYVANSE (LISDEXAMFETAMINE DIMESYLATE) [Suspect]

REACTIONS (2)
  - Drug interaction [None]
  - Pain in extremity [None]
